FAERS Safety Report 8724057 (Version 2)
Quarter: 2013Q4

REPORT INFORMATION
  Report Type: Spontaneous
  Country: US (occurrence: US)
  Receive Date: 20120815
  Receipt Date: 20131107
  Transmission Date: 20140711
  Serious: Yes (Other)
  Sender: FDA-Public Use
  Company Number: US-ASTRAZENECA-2012SE55326

PATIENT
  Age: 52 Year
  Sex: Female
  Weight: 94.8 kg

DRUGS (3)
  1. ATACAND HCT [Suspect]
     Route: 048
  2. ATACAND [Suspect]
     Indication: HYPERTENSION
     Route: 048
  3. NORVASC [Suspect]
     Indication: HYPERTENSION
     Route: 065

REACTIONS (3)
  - Hypertension [Not Recovered/Not Resolved]
  - Drug dose omission [Unknown]
  - Therapeutic response decreased [Unknown]
